FAERS Safety Report 10176319 (Version 1)
Quarter: 2014Q2

REPORT INFORMATION
  Report Type: Spontaneous
  Country: US (occurrence: US)
  Receive Date: 20140516
  Receipt Date: 20140516
  Transmission Date: 20141212
  Serious: No
  Sender: FDA-Public Use
  Company Number: US-PFIZER INC-2014131623

PATIENT
  Age: 39 Year
  Sex: 0

DRUGS (5)
  1. NEURONTIN [Suspect]
     Dosage: UNK
  2. TRAZODONE HYDROCHLORIDE [Suspect]
     Dosage: UNK
  3. BUSPAR [Suspect]
     Dosage: UNK
  4. MACROBID [Suspect]
  5. ZANAFLEX [Suspect]
     Dosage: UNK

REACTIONS (1)
  - Drug hypersensitivity [Unknown]
